FAERS Safety Report 5690061-4 (Version None)
Quarter: 2008Q1

REPORT INFORMATION
  Report Type: 
  Country: None (occurrence: None)
  Receive Date: 20080331
  Receipt Date: 20080331
  Transmission Date: 20080703
  Serious: Yes (Life-Threatening)
  Sender: FDA-Public Use
  Company Number: None

PATIENT
  Age: 50 Year

DRUGS (1)
  1. REMICADE [Suspect]
     Dates: start: 20061127, end: 20070831

REACTIONS (1)
  - NON-HODGKIN'S LYMPHOMA [None]
